FAERS Safety Report 18266491 (Version 9)
Quarter: 2021Q2

REPORT INFORMATION
  Report Type: Report from Study
  Country: DK (occurrence: DK)
  Receive Date: 20200915
  Receipt Date: 20210513
  Transmission Date: 20210717
  Serious: Yes (Hospitalization, Other)
  Sender: FDA-Public Use
  Company Number: DK-SA-2020SA035527

PATIENT
  Age: 12 Year
  Sex: Male
  Weight: 36 kg

DRUGS (57)
  1. DEXAMETHASONE. [Suspect]
     Active Substance: DEXAMETHASONE
     Dosage: 10 MG/M2, ON DAYS 3, 2, 1, 1, 8, 15 TO 19, 22,
     Route: 065
     Dates: start: 20191220, end: 20191220
  2. DOXORUBICIN [Suspect]
     Active Substance: DOXORUBICIN
     Dosage: 25 MG/M2
     Route: 042
     Dates: start: 20191220, end: 20191220
  3. ONDANSETRON [Concomitant]
     Active Substance: ONDANSETRON
     Indication: PROPHYLAXIS
     Dosage: UNK
     Route: 042
     Dates: start: 20191220, end: 20191224
  4. MORFIN [MORPHINE] [Concomitant]
     Active Substance: MORPHINE
     Dosage: UNK
     Route: 048
     Dates: start: 20191226, end: 20191227
  5. MACROGOL [Concomitant]
     Active Substance: POLYETHYLENE GLYCOLS
     Dosage: UNK
     Route: 048
     Dates: start: 20191230, end: 20200107
  6. SOLU?MEDROL [Concomitant]
     Active Substance: METHYLPREDNISOLONE SODIUM SUCCINATE
     Dosage: UNK
     Route: 065
     Dates: start: 20191223, end: 20191223
  7. MONTELUKAST [Concomitant]
     Active Substance: MONTELUKAST SODIUM
     Dosage: 5 MG, 1X
     Route: 048
     Dates: start: 20191230, end: 20191230
  8. PARACETAMOL [Concomitant]
     Active Substance: ACETAMINOPHEN
     Dosage: 500 MG, 1X
     Route: 048
     Dates: start: 20191223, end: 20191223
  9. ONDANSETRON [Concomitant]
     Active Substance: ONDANSETRON
     Dosage: UNK
     Route: 042
     Dates: start: 20191230, end: 20191230
  10. ONDANSETRON [Concomitant]
     Active Substance: ONDANSETRON
     Dosage: UNK
     Route: 048
     Dates: start: 20191230, end: 20200107
  11. TAVEGYL [Concomitant]
     Active Substance: CLEMASTINE FUMARATE
     Dosage: 0.72 MG, 1X
     Route: 042
     Dates: start: 20200106, end: 20200106
  12. ALLOPURINOL. [Concomitant]
     Active Substance: ALLOPURINOL
     Indication: PROPHYLAXIS
     Dosage: UNK
     Route: 048
     Dates: start: 20191220, end: 20191224
  13. ALLOPURINOL. [Concomitant]
     Active Substance: ALLOPURINOL
     Dosage: UNK
     Route: 048
     Dates: start: 20191227, end: 20200107
  14. CALCIUM [Concomitant]
     Active Substance: CALCIUM
     Indication: PROPHYLAXIS
     Dosage: UNK
     Route: 048
     Dates: start: 20191220, end: 20200206
  15. VORICONAZOLE. [Concomitant]
     Active Substance: VORICONAZOLE
     Dosage: UNK
     Route: 048
     Dates: start: 20191220, end: 20191224
  16. FAMOTIDINE. [Concomitant]
     Active Substance: FAMOTIDINE
     Dosage: 18 MG, 1X
     Route: 042
     Dates: start: 20191230, end: 20191230
  17. VINCRISTINE SULFATE. [Suspect]
     Active Substance: VINCRISTINE SULFATE
     Dosage: 1.5 MG/M2, ON DAYS 10, 17, 24, AND 31 DURING THE INDUCTION PERIOD
     Route: 042
     Dates: start: 20191220, end: 20191220
  18. METHOTREXATE. [Suspect]
     Active Substance: METHOTREXATE
     Indication: T-CELL TYPE ACUTE LEUKAEMIA
     Dosage: 1000 MG/M2, ON DAY 8 OF THE CONSOLIDATION PERIOD
     Route: 042
  19. ASPARAGINASE [Suspect]
     Active Substance: ASPARAGINASE
     Indication: T-CELL TYPE ACUTE LEUKAEMIA
     Dosage: 1000 IU/M2 ON DAYS 10 AND 24 DURING INDUCTION PERIOD
     Route: 030
     Dates: start: 20200102, end: 20200102
  20. PROPOFOL. [Concomitant]
     Active Substance: PROPOFOL
     Indication: PROPHYLAXIS
     Dosage: UNK
     Route: 042
     Dates: start: 20191220, end: 20200213
  21. CYTARABIN [Concomitant]
     Active Substance: CYTARABINE
     Dosage: UNK
     Route: 065
     Dates: start: 20200106, end: 20200106
  22. CYTARABIN [Concomitant]
     Active Substance: CYTARABINE
     Dosage: UNK
     Route: 037
     Dates: start: 20191227, end: 20191227
  23. METHOTREXAT [METHOTREXATE] [Concomitant]
     Active Substance: METHOTREXATE
     Dosage: UNK
     Route: 037
     Dates: start: 20191220, end: 20191227
  24. METOPIMAZINA [Concomitant]
     Indication: PROPHYLAXIS
     Dosage: UNK
     Route: 048
     Dates: start: 20200106
  25. PARACETAMOL [Concomitant]
     Active Substance: ACETAMINOPHEN
     Dosage: UNK
     Route: 048
     Dates: start: 20191226, end: 20191227
  26. TAVEGYL [Concomitant]
     Active Substance: CLEMASTINE FUMARATE
     Dosage: 0.72 MG, 1X
     Route: 042
     Dates: start: 20191230, end: 20191230
  27. ALFENTANIL. [Concomitant]
     Active Substance: ALFENTANIL
     Indication: PROPHYLAXIS
     Dosage: UNK
     Route: 048
     Dates: start: 20191227, end: 20191227
  28. FAMOTIDINE. [Concomitant]
     Active Substance: FAMOTIDINE
     Indication: PROPHYLAXIS
     Dosage: 18 MG, 1X
     Route: 042
     Dates: start: 20200106, end: 20200106
  29. FAMOTIDINE. [Concomitant]
     Active Substance: FAMOTIDINE
     Dosage: 18 UNK
     Dates: start: 20191223, end: 20191223
  30. FUSIDIN [Concomitant]
     Dosage: UNK
     Route: 062
     Dates: start: 20191227, end: 20191227
  31. DEXAMETHASONE. [Suspect]
     Active Substance: DEXAMETHASONE
     Indication: T-CELL TYPE ACUTE LEUKAEMIA
     Dosage: 10 MG/M2, ON DAYS 3, 2, 1, 1, 8, 15 TO 19, 22,
     Route: 065
     Dates: start: 20200102, end: 20200102
  32. DOXORUBICIN [Suspect]
     Active Substance: DOXORUBICIN
     Indication: T-CELL TYPE ACUTE LEUKAEMIA
     Dosage: 25 MG/M2
     Route: 042
  33. ONDANSETRON [Concomitant]
     Active Substance: ONDANSETRON
     Dosage: UNK
     Route: 048
     Dates: start: 20191226, end: 20191227
  34. MORFIN [MORPHINE] [Concomitant]
     Active Substance: MORPHINE
     Dosage: UNK
     Route: 048
     Dates: start: 20191220, end: 20200214
  35. ACICLOVIR [Concomitant]
     Active Substance: ACYCLOVIR
     Dosage: UNK
     Route: 048
     Dates: start: 20191230, end: 20200107
  36. BACTRIM [Concomitant]
     Active Substance: SULFAMETHOXAZOLE\TRIMETHOPRIM
     Indication: PROPHYLAXIS
     Dosage: UNK
     Route: 048
     Dates: start: 20191221, end: 20191224
  37. SOLU?MEDROL [Concomitant]
     Active Substance: METHYLPREDNISOLONE SODIUM SUCCINATE
     Dosage: UNK
     Route: 037
     Dates: start: 20191230, end: 20191230
  38. VINCRISTINE SULFATE. [Suspect]
     Active Substance: VINCRISTINE SULFATE
     Indication: T-CELL TYPE ACUTE LEUKAEMIA
     Dosage: 1.5 MG/M2, ON DAYS 10, 17, 24, AND 31 DURING THE INDUCTION PERIOD
     Route: 042
     Dates: start: 20200102, end: 20200102
  39. MACROGOL [Concomitant]
     Active Substance: POLYETHYLENE GLYCOLS
     Indication: PROPHYLAXIS
     Dosage: UNK
     Route: 048
     Dates: start: 20191226, end: 20191227
  40. MONTELUKAST [Concomitant]
     Active Substance: MONTELUKAST SODIUM
     Indication: PROPHYLAXIS
     Dosage: 5 MG, 1X
     Route: 048
     Dates: start: 20200106, end: 20200106
  41. CLEMASTIN [Concomitant]
     Active Substance: CLEMASTINE
     Indication: PROPHYLAXIS
     Dosage: UNK
     Route: 042
     Dates: start: 20191223, end: 20200102
  42. MITOXANTRONE [Suspect]
     Active Substance: MITOXANTRONE HYDROCHLORIDE
     Indication: T-CELL TYPE ACUTE LEUKAEMIA
     Dosage: 12.3 MG/M2 12.3 MG 12.3 MG/M? DAYS 8 AND 9 OF INDUCTION PERIOD
     Route: 042
  43. PARACETAMOL [Concomitant]
     Active Substance: ACETAMINOPHEN
     Indication: PROPHYLAXIS
     Dosage: 500 MG, 1X
     Route: 048
     Dates: start: 20200106, end: 20200106
  44. TAVEGYL [Concomitant]
     Active Substance: CLEMASTINE FUMARATE
     Indication: PROPHYLAXIS
     Dosage: 0.72 MG, QD
     Route: 042
     Dates: start: 20191223, end: 20191223
  45. CYTARABIN [Concomitant]
     Active Substance: CYTARABINE
     Dosage: UNK
     Dates: start: 20191223, end: 20191223
  46. MONTELUKAST [Concomitant]
     Active Substance: MONTELUKAST SODIUM
     Dosage: 5 MG, QD
     Route: 048
     Dates: start: 20191223, end: 20191223
  47. FENTANYL. [Concomitant]
     Active Substance: FENTANYL
     Indication: PROPHYLAXIS
     Dosage: UNK
     Route: 042
     Dates: start: 20191220, end: 20200206
  48. MITOXANTRONE [Suspect]
     Active Substance: MITOXANTRONE HYDROCHLORIDE
     Dosage: 10 MG/M2, 10 MG/M? ON DAYS 8 AND 9 OF THE
     Route: 042
     Dates: start: 20191220, end: 20191220
  49. METHOTREXATE. [Suspect]
     Active Substance: METHOTREXATE
     Dosage: 1000 MG/M2, ON DAY 8 OF THE CONSOLIDATION PERIOD
     Route: 042
     Dates: start: 20191220, end: 20191220
  50. ASPARAGINASE [Suspect]
     Active Substance: ASPARAGINASE
     Dosage: 1000 IU/M2 ON DAYS 10 AND 24 DURING INDUCTION PERIOD
     Route: 030
     Dates: start: 20191220, end: 20191220
  51. PARACETAMOL [Concomitant]
     Active Substance: ACETAMINOPHEN
     Dosage: 500 MG, 1X
     Route: 048
     Dates: start: 20191230, end: 20191230
  52. ACICLOVIR [Concomitant]
     Active Substance: ACYCLOVIR
     Indication: PROPHYLAXIS
     Dosage: UNK
     Route: 048
     Dates: start: 20191220, end: 20191224
  53. ACICLOVIR [Concomitant]
     Active Substance: ACYCLOVIR
     Dosage: UNK
     Route: 048
     Dates: start: 20191227, end: 20191227
  54. LAXOBERAL [Concomitant]
     Active Substance: SODIUM PICOSULFATE
     Dosage: UNK
     Route: 048
     Dates: start: 20191220, end: 20200206
  55. METHOTREXAT [METHOTREXATE] [Concomitant]
     Active Substance: METHOTREXATE
     Dosage: UNK
     Route: 065
     Dates: start: 20191223, end: 20191223
  56. ISATUXIMAB [Suspect]
     Active Substance: ISATUXIMAB
     Indication: T-CELL TYPE ACUTE LEUKAEMIA
     Dosage: 20 MG/KG, QW
     Route: 042
     Dates: start: 20200106, end: 20200106
  57. ISATUXIMAB [Suspect]
     Active Substance: ISATUXIMAB
     Dosage: 20 MG/KG, QW
     Route: 042
     Dates: start: 20191223, end: 20191223

REACTIONS (4)
  - Epistaxis [Recovered/Resolved]
  - Hepatic failure [Recovered/Resolved]
  - Febrile neutropenia [Recovered/Resolved]
  - Disseminated aspergillosis [Recovered/Resolved]

NARRATIVE: CASE EVENT DATE: 20200107
